FAERS Safety Report 6873728 (Version 2)
Quarter: 2020Q3

REPORT INFORMATION
  Report Type: Report from Study
  Country: US (occurrence: US)
  Receive Date: 20090106
  Receipt Date: 20090318
  Transmission Date: 20201105
  Serious: Yes (Death, Disabling, Other)
  Sender: FDA-Public Use
  Company Number: US-ROCHE-606089

PATIENT
  Sex: Female

DRUGS (1)
  1. IBANDRONIC ACID. [Suspect]
     Active Substance: IBANDRONIC ACID
     Indication: OSTEOPOROSIS
     Route: 048
     Dates: start: 2005

REACTIONS (4)
  - Spinal compression fracture [Unknown]
  - Bedridden [Unknown]
  - Pain [Unknown]
  - Pneumonia [Fatal]
